FAERS Safety Report 9010420 (Version 2)
Quarter: 2013Q1

REPORT INFORMATION
  Report Type: Report from Study
  Country: US (occurrence: US)
  Receive Date: 20130109
  Receipt Date: 20130123
  Transmission Date: 20140127
  Serious: Yes (Death, Hospitalization)
  Sender: FDA-Public Use
  Company Number: US-ROCHE-1176858

PATIENT
  Sex: 0

DRUGS (2)
  1. ERLOTINIB [Suspect]
     Indication: COLORECTAL CANCER METASTATIC
     Route: 065
     Dates: start: 20120327, end: 20121228
  2. BEVACIZUMAB [Suspect]
     Indication: COLORECTAL CANCER METASTATIC
     Dosage: RECEIVED 7 CYCLE ON 06/DEC/2012
     Route: 065

REACTIONS (1)
  - Blood bilirubin increased [Fatal]
